FAERS Safety Report 5451221-0 (Version None)
Quarter: 2007Q3

REPORT INFORMATION
  Report Type: 
  Country: None (occurrence: None)
  Receive Date: 20070913
  Receipt Date: 20070905
  Transmission Date: 20080115
  Serious: Yes (Hospitalization)
  Sender: FDA-Public Use
  Company Number: JP-AMGEN-US242813

PATIENT
  Age: 73 Year
  Sex: Female

DRUGS (6)
  1. ENBREL [Suspect]
     Indication: RHEUMATOID ARTHRITIS
     Route: 058
     Dates: start: 20070728, end: 20070811
  2. PROMAC [Concomitant]
     Route: 065
  3. DIOVAN [Concomitant]
     Route: 065
  4. BUCILLAMINE [Concomitant]
     Route: 065
  5. PREDONINE [Concomitant]
     Route: 048
  6. CELECOXIB [Concomitant]
     Dosage: UNKNOWN
     Route: 048
     Dates: start: 20070627

REACTIONS (4)
  - ALOPECIA [None]
  - ENTERITIS INFECTIOUS [None]
  - RASH [None]
  - STOMATITIS [None]
